FAERS Safety Report 10817338 (Version 1)
Quarter: 2015Q1

REPORT INFORMATION
  Report Type: Report from Study
  Country: AU (occurrence: None)
  Receive Date: 20150213
  Receipt Date: 20150213
  Transmission Date: 20150721
  Serious: Yes (Other)
  Sender: FDA-Public Use
  Company Number: 2015-10639

PATIENT
  Age: 78 Year
  Sex: Male

DRUGS (1)
  1. EYLEA [Suspect]
     Active Substance: AFLIBERCEPT
     Indication: AGE-RELATED MACULAR DEGENERATION
     Dosage: EVERY 4 WEEKS (LEFT EYE)
     Route: 031
     Dates: start: 201303

REACTIONS (3)
  - Eye disorder [None]
  - Inappropriate schedule of drug administration [None]
  - Eye pain [None]

NARRATIVE: CASE EVENT DATE: 201303
